FAERS Safety Report 13935981 (Version 1)
Quarter: 2017Q3

REPORT INFORMATION
  Report Type: Spontaneous
  Country: US (occurrence: US)
  Receive Date: 20170905
  Receipt Date: 20170905
  Transmission Date: 20171127
  Serious: Yes (Hospitalization, Other)
  Sender: FDA-Public Use
  Company Number: US-PFIZER INC-2017374360

PATIENT
  Age: 67 Year
  Sex: Female

DRUGS (3)
  1. 5 FLUOROURACIL /00098801/ [Suspect]
     Active Substance: FLUOROURACIL
     Indication: ENDOMETRIAL ADENOCARCINOMA
     Dosage: 15 MG/KG, DAILY (FOR THREE DAYS, THREE-DAY COURSES WERE REPEATED EVERY FOUR WEEKS)
     Route: 042
  2. MEDROXYPROGESTERONE ACETATE. [Suspect]
     Active Substance: MEDROXYPROGESTERONE ACETATE
     Indication: ENDOMETRIAL ADENOCARCINOMA
     Dosage: 400 MG, UNK (THREE TIMES WEEKLY)
     Route: 030
  3. MELPHALAN. [Suspect]
     Active Substance: MELPHALAN
     Indication: ENDOMETRIAL ADENOCARCINOMA
     Dosage: 0.2 MG/KG, DAILY (FOR THREE CONSECUTIVE DAYS, THREE-DAY COURSES WERE REPEATED EVERY FOUR WEEKS)
     Route: 048

REACTIONS (1)
  - Bone marrow failure [Unknown]
